FAERS Safety Report 12276848 (Version 1)
Quarter: 2016Q2

REPORT INFORMATION
  Report Type: Spontaneous
  Country: US (occurrence: US)
  Receive Date: 20160418
  Receipt Date: 20160418
  Transmission Date: 20160815
  Serious: Yes (Other)
  Sender: FDA-Public Use
  Company Number: US-PFIZER INC-2016206990

PATIENT

DRUGS (1)
  1. ADVIL [Suspect]
     Active Substance: IBUPROFEN
     Dosage: 2 DF, AS NEEDED (TAKE 2 A DAY EVERY EIGHT HOURS)

REACTIONS (5)
  - Hyperchlorhydria [Unknown]
  - Gastric disorder [Unknown]
  - Crohn^s disease [Unknown]
  - Condition aggravated [Unknown]
  - Drug ineffective [Unknown]
